FAERS Safety Report 5562730-8 (Version None)
Quarter: 2007Q4

REPORT INFORMATION
  Report Type: 
  Country: None (occurrence: None)
  Receive Date: 20071217
  Receipt Date: 20071215
  Transmission Date: 20080405
  Serious: Yes (Hospitalization)
  Sender: FDA-Public Use
  Company Number: PHHO2005BE04893

PATIENT
  Age: 78 Year
  Sex: Female
  Weight: 78 kg

DRUGS (4)
  1. ZOLEDRONIC ACID [Suspect]
     Indication: OSTEOPOROTIC FRACTURE
     Dosage: DOUBLE-BLINDED
     Route: 042
     Dates: start: 20040126
  2. ZOLEDRONIC ACID [Suspect]
     Dosage: 5MG, ONCE YEARLY
  3. VITAMIN D [Concomitant]
     Indication: OSTEOPOROTIC FRACTURE
  4. CALCIUM CARBONATE [Concomitant]
     Indication: OSTEOPOROTIC FRACTURE

REACTIONS (5)
  - CONCOMITANT DISEASE PROGRESSION [None]
  - NECROSIS [None]
  - OSTEOMYELITIS [None]
  - TOE AMPUTATION [None]
  - TOE OPERATION [None]
